FAERS Safety Report 18914114 (Version 1)
Quarter: 2021Q1

REPORT INFORMATION
  Report Type: Spontaneous
  Country: CA (occurrence: CA)
  Receive Date: 20210218
  Receipt Date: 20210218
  Transmission Date: 20210420
  Serious: Yes (Other)
  Sender: FDA-Public Use
  Company Number: CA-GILEAD-2021-0517821

PATIENT
  Age: 47 Year
  Sex: Female

DRUGS (2)
  1. DARUNAVIR [Concomitant]
     Active Substance: DARUNAVIR
     Route: 048
  2. GENVOYA [Suspect]
     Active Substance: COBICISTAT\ELVITEGRAVIR\EMTRICITABINE\TENOFOVIR ALAFENAMIDE FUMARATE
     Indication: HIV INFECTION
     Dosage: 1 DOSAGE FORM, QD
     Route: 065

REACTIONS (3)
  - Renal failure [Unknown]
  - Renal impairment [Unknown]
  - Blood creatinine increased [Unknown]
